FAERS Safety Report 6199258-0 (Version None)
Quarter: 2009Q2

REPORT INFORMATION
  Report Type: 
  Country: None (occurrence: None)
  Receive Date: 20090519
  Receipt Date: 20090519
  Transmission Date: 20091009
  Serious: No
  Sender: FDA-Public Use
  Company Number: None

PATIENT
  Age: 39 Year
  Sex: Male
  Weight: 104.3273 kg

DRUGS (1)
  1. LEVAQUIN [Suspect]
     Indication: PNEUMONIA VIRAL
     Dosage: 500MG 1 DAILY PO 1 PILL/DAY
     Route: 048
     Dates: start: 20090515, end: 20090516

REACTIONS (2)
  - ABDOMINAL PAIN UPPER [None]
  - MYALGIA [None]
